FAERS Safety Report 4352320-7 (Version None)
Quarter: 2004Q2

REPORT INFORMATION
  Report Type: 
  Country: None (occurrence: None)
  Receive Date: 20040415
  Receipt Date: 20030227
  Transmission Date: 20050107
  Serious: Yes (Hospitalization)
  Sender: FDA-Public Use
  Company Number: 2003UW02726

PATIENT
  Age: 82 Year
  Sex: Male
  Weight: 93.5 kg

DRUGS (2)
  1. TENORMIN [Suspect]
     Indication: HYPERTENSION
  2. CODE NOT BROKEN [Suspect]
     Indication: PROPHYLAXIS
     Dates: start: 20021010

REACTIONS (1)
  - BRADYCARDIA [None]
